FAERS Safety Report 5074644-0 (Version None)
Quarter: 2006Q3

REPORT INFORMATION
  Report Type: 
  Country: None (occurrence: None)
  Receive Date: 20060803
  Receipt Date: 20060725
  Transmission Date: 20061208
  Serious: Yes (Hospitalization)
  Sender: FDA-Public Use
  Company Number: MEDI-0004648

PATIENT
  Age: 48 Year
  Sex: Male

DRUGS (8)
  1. ETHYOL [Suspect]
     Indication: CHEMOTHERAPY
     Dosage: 500 MG, 5 IN 5 D, SUBCUTANEOUS
     Route: 058
     Dates: start: 20060509
  2. ETHYOL [Suspect]
     Indication: RADIOTHERAPY
     Dosage: 500 MG, 5 IN 5 D, SUBCUTANEOUS
     Route: 058
     Dates: start: 20060509
  3. RADIATION THERAPY [Concomitant]
  4. ERBITUX [Concomitant]
  5. CISPLATIN [Concomitant]
  6. BENADRYL [Concomitant]
  7. KYTRIL [Concomitant]
  8. DECADRON [Concomitant]

REACTIONS (4)
  - BLOOD POTASSIUM DECREASED [None]
  - FATIGUE [None]
  - MUSCULAR WEAKNESS [None]
  - RASH ERYTHEMATOUS [None]
